FAERS Safety Report 8350869-3 (Version None)
Quarter: 2012Q2

REPORT INFORMATION
  Report Type: 
  Country: None (occurrence: None)
  Receive Date: 20120510
  Receipt Date: 20101108
  Transmission Date: 20120825
  Serious: No
  Sender: FDA-Public Use
  Company Number: US-TEVA-2010005824

PATIENT
  Sex: Female
  Weight: 108.96 kg

DRUGS (1)
  1. NUVIGIL [Suspect]
     Route: 048
     Dates: start: 20101018

REACTIONS (5)
  - INTENTIONAL DRUG MISUSE [None]
  - DECREASED APPETITE [None]
  - THERAPEUTIC RESPONSE UNEXPECTED [None]
  - DRUG TOLERANCE [None]
  - PSYCHOMOTOR HYPERACTIVITY [None]
